FAERS Safety Report 5152377-X (Version None)
Quarter: 2006Q4

REPORT INFORMATION
  Report Type: 
  Country: None (occurrence: None)
  Receive Date: 20061116
  Receipt Date: 20061011
  Transmission Date: 20070319
  Serious: Yes (Other)
  Sender: FDA-Public Use
  Company Number: 2006UW19720

PATIENT
  Age: 31 Year
  Sex: Female

DRUGS (2)
  1. SYMBICORT [Suspect]
     Indication: ASTHMA
     Dosage: 320/9 UG EVERY TWO HOURS IF IN CRISIS (PATIENT TOOK TOTAL OF 10 DOSES ON SAME DAY)
     Route: 055
     Dates: start: 20061001, end: 20061001
  2. COMBIVENT [Concomitant]
     Indication: ASTHMA
     Dates: start: 20061001

REACTIONS (5)
  - COMPLICATION OF PREGNANCY [None]
  - DRUG EXPOSURE DURING PREGNANCY [None]
  - OEDEMA [None]
  - PRESCRIBED OVERDOSE [None]
  - WEIGHT INCREASED [None]
